FAERS Safety Report 4398853-9 (Version None)
Quarter: 2004Q3

REPORT INFORMATION
  Report Type: 
  Country: None (occurrence: None)
  Receive Date: 20040712
  Receipt Date: 20040624
  Transmission Date: 20050211
  Serious: Yes (Hospitalization, Other)
  Sender: FDA-Public Use
  Company Number: USA-2003-0008901

PATIENT
  Age: 45 Year
  Sex: Male
  Weight: 93 kg

DRUGS (8)
  1. OXYCONTIN [Suspect]
     Indication: PAIN
     Dosage: 50 MG, Q12H, ORAL
     Route: 048
     Dates: start: 20000101
  2. PERCOCET [Concomitant]
  3. RESTORIL [Concomitant]
  4. TRAZODONE HCL [Concomitant]
  5. PHENOBARBITAL TAB [Concomitant]
  6. GLYBURIDE [Concomitant]
  7. ATIVAN [Concomitant]
  8. EFFEXOR [Concomitant]

REACTIONS (17)
  - ANGER [None]
  - BACK PAIN [None]
  - BRONCHITIS ACUTE [None]
  - CARPAL TUNNEL SYNDROME [None]
  - DEPENDENCE [None]
  - DEPRESSION SUICIDAL [None]
  - DIABETIC NEUROPATHY [None]
  - DRUG ABUSER [None]
  - DRUG DETOXIFICATION [None]
  - DRUG WITHDRAWAL SYNDROME [None]
  - IRRITABILITY [None]
  - MEDICATION ERROR [None]
  - NASOPHARYNGITIS [None]
  - OSTEOARTHRITIS [None]
  - PAIN [None]
  - PERSONALITY DISORDER [None]
  - THERAPY NON-RESPONDER [None]
